FAERS Safety Report 20819510 (Version 1)
Quarter: 2022Q2

REPORT INFORMATION
  Report Type: Spontaneous
  Country: US (occurrence: None)
  Receive Date: 20220512
  Receipt Date: 20220512
  Transmission Date: 20220720
  Serious: Yes (Other)
  Sender: FDA-Public Use
  Company Number: US-Fresenius Kabi-FK202205388

PATIENT
  Age: 47 Year
  Sex: Female

DRUGS (1)
  1. GEMCITABINE [Suspect]
     Active Substance: GEMCITABINE
     Indication: Endometrial cancer stage IV
     Dosage: TWO WEEKLY CYCLES OF AN OFF-LABEL GEMCITABINE 1000 MG/M2 EACH

REACTIONS (5)
  - Retinopathy [Unknown]
  - Retinal detachment [Recovered/Resolved]
  - Thrombocytopenia [Unknown]
  - Elschnig^s bodies [Not Recovered/Not Resolved]
  - Off label use [Unknown]
